FAERS Safety Report 9895723 (Version 2)
Quarter: 2014Q1

REPORT INFORMATION
  Report Type: Spontaneous
  Country: US (occurrence: US)
  Receive Date: 20140213
  Receipt Date: 20140213
  Transmission Date: 20141002
  Serious: No
  Sender: FDA-Public Use
  Company Number: US-BRISTOL-MYERS SQUIBB COMPANY-18978023

PATIENT
  Age: 50 Year
  Sex: Male

DRUGS (1)
  1. ORENCIA FOR INJ 250 MG/VIAL [Suspect]
     Dosage: LAST INJECTION ON 06-MAY-2013

REACTIONS (1)
  - Drug ineffective [Unknown]
